FAERS Safety Report 14049059 (Version 1)
Quarter: 2017Q4

REPORT INFORMATION
  Report Type: Report from Study
  Country: NL (occurrence: NL)
  Receive Date: 20171005
  Receipt Date: 20171005
  Transmission Date: 20180321
  Serious: Yes (Hospitalization)
  Sender: FDA-Public Use
  Company Number: NL-TEVA-813064ROM

PATIENT
  Age: 15 Year
  Sex: Male

DRUGS (1)
  1. METHYLPHENIDATE. [Suspect]
     Active Substance: METHYLPHENIDATE
     Dosage: IMMEDIATE RELEASE
     Route: 048

REACTIONS (10)
  - Headache [Unknown]
  - Tremor [Unknown]
  - Toxicity to various agents [Unknown]
  - Vomiting [Unknown]
  - Hypertension [Unknown]
  - Dizziness [Unknown]
  - Agitation [Unknown]
  - Tachycardia [Unknown]
  - Blood creatine phosphokinase increased [Unknown]
  - Muscle contracture [Unknown]
